FAERS Safety Report 16945053 (Version 2)
Quarter: 2019Q4

REPORT INFORMATION
  Report Type: Spontaneous
  Country: CA (occurrence: CA)
  Receive Date: 20191022
  Receipt Date: 20191024
  Transmission Date: 20200122
  Serious: Yes (Other)
  Sender: FDA-Public Use
  Company Number: CA-PFIZER INC-2019456438

PATIENT
  Sex: Male

DRUGS (3)
  1. METHOTREXATE SODIUM. [Suspect]
     Active Substance: METHOTREXATE SODIUM
     Dosage: 25 UNK, UNK
     Dates: start: 2009, end: 2017
  2. REMICADE [Concomitant]
     Active Substance: INFLIXIMAB
     Dosage: UNK
     Dates: start: 2005, end: 2015
  3. HUMIRA [Concomitant]
     Active Substance: ADALIMUMAB
     Dosage: 40 EVERY 2 WEEKS
     Route: 058
     Dates: start: 2015

REACTIONS (3)
  - Somnolence [Unknown]
  - Nausea [Unknown]
  - Drug intolerance [Unknown]
